FAERS Safety Report 20419326 (Version 1)
Quarter: 2022Q1

REPORT INFORMATION
  Report Type: Spontaneous
  Country: CN (occurrence: CN)
  Receive Date: 20220203
  Receipt Date: 20220203
  Transmission Date: 20220423
  Serious: Yes (Hospitalization, Other)
  Sender: FDA-Public Use
  Company Number: CN-009507513-2201CHN007998

PATIENT
  Age: 55 Year
  Sex: Female
  Weight: 55 kg

DRUGS (5)
  1. TEMODAL [Suspect]
     Active Substance: TEMOZOLOMIDE
     Indication: Malignant glioma
     Dosage: 120 MG, ONCE IN A DAY, 5/WEEK
     Route: 048
     Dates: start: 20201223, end: 20210116
  2. VALPROATE SODIUM [Suspect]
     Active Substance: VALPROATE SODIUM
     Indication: Malignant glioma
     Dosage: 1000 MG, EVERY DAY
     Route: 048
     Dates: start: 20201223, end: 20210205
  3. VALPROATE SODIUM [Suspect]
     Active Substance: VALPROATE SODIUM
     Indication: Prophylaxis
     Dosage: 250 MG, QD
     Route: 048
     Dates: start: 20210116, end: 20210205
  4. CEFOPERAZONE SODIUM\SULBACTAM SODIUM [Concomitant]
     Active Substance: CEFOPERAZONE SODIUM\SULBACTAM SODIUM
     Indication: Malignant glioma
     Dosage: 2 GRAMS, BID
     Route: 041
     Dates: start: 20210103, end: 20210109
  5. CEFOPERAZONE SODIUM\SULBACTAM SODIUM [Concomitant]
     Active Substance: CEFOPERAZONE SODIUM\SULBACTAM SODIUM
     Indication: Anti-infective therapy

REACTIONS (3)
  - Drug eruption [Recovering/Resolving]
  - Pyrexia [Unknown]
  - Infection [Unknown]

NARRATIVE: CASE EVENT DATE: 20210103
